FAERS Safety Report 20155049 (Version 1)
Quarter: 2021Q4

REPORT INFORMATION
  Report Type: Spontaneous
  Country: US (occurrence: None)
  Receive Date: 20211206
  Receipt Date: 20211206
  Transmission Date: 20220303
  Serious: Yes (Hospitalization)
  Sender: FDA-Public Use
  Company Number: None

PATIENT
  Sex: Male

DRUGS (3)
  1. EVEROLIMUS [Suspect]
     Active Substance: EVEROLIMUS
     Indication: Epilepsy
     Dosage: FREQUENCY : DAILY;?
     Route: 048
     Dates: start: 202109
  2. EVEROLIMUS [Suspect]
     Active Substance: EVEROLIMUS
  3. AFINITOR [Suspect]
     Active Substance: EVEROLIMUS
     Indication: Epilepsy
     Dates: start: 202002, end: 202109

REACTIONS (3)
  - Seizure [None]
  - Therapy cessation [None]
  - Product substitution issue [None]
